FAERS Safety Report 6732413-7 (Version None)
Quarter: 2010Q2

REPORT INFORMATION
  Report Type: 
  Country: None (occurrence: None)
  Receive Date: 20100519
  Receipt Date: 20100510
  Transmission Date: 20101027
  Serious: Yes (Hospitalization)
  Sender: FDA-Public Use
  Company Number: AU-MERCK-1002USA02270

PATIENT
  Age: 53 Year
  Sex: Female
  Weight: 120 kg

DRUGS (9)
  1. CANCIDAS [Suspect]
     Indication: FUNGAEMIA
     Route: 042
     Dates: start: 20100204, end: 20100205
  2. CANCIDAS [Suspect]
     Route: 042
     Dates: start: 20100203
  3. ACETAMINOPHEN [Concomitant]
     Route: 065
  4. MEROPENEM [Concomitant]
     Route: 065
  5. THIAMINE [Concomitant]
     Route: 065
  6. CERNEVIT-12 [Concomitant]
     Route: 065
  7. PHYTONADIONE [Concomitant]
     Route: 065
  8. ESOMEPRAZOLE [Concomitant]
     Route: 065
  9. ALBUTEROL [Concomitant]
     Route: 065

REACTIONS (1)
  - DIABETES INSIPIDUS [None]
